FAERS Safety Report 17352018 (Version 1)
Quarter: 2020Q1

REPORT INFORMATION
  Report Type: Spontaneous
  Country: US (occurrence: US)
  Receive Date: 20200130
  Receipt Date: 20200130
  Transmission Date: 20200409
  Serious: Yes (Other)
  Sender: FDA-Public Use
  Company Number: US-JNJFOC-20200140555

PATIENT
  Age: 67 Year
  Sex: Female

DRUGS (2)
  1. SIMPONI [Suspect]
     Active Substance: GOLIMUMAB
     Indication: PRODUCT USED FOR UNKNOWN INDICATION
     Route: 058
     Dates: start: 20190719
  2. METHOTREXATE. [Concomitant]
     Active Substance: METHOTREXATE
     Dates: start: 20190719

REACTIONS (2)
  - Condition aggravated [Unknown]
  - Tremor [Unknown]

NARRATIVE: CASE EVENT DATE: 202001
